FAERS Safety Report 4850205-0 (Version None)
Quarter: 2005Q4

REPORT INFORMATION
  Report Type: 
  Country: None (occurrence: None)
  Receive Date: 20051123
  Receipt Date: 20050722
  Transmission Date: 20060501
  Serious: Yes (Hospitalization)
  Sender: FDA-Public Use
  Company Number: 2005105218

PATIENT

DRUGS (2)
  1. LIPITOR [Suspect]
     Indication: ILL-DEFINED DISORDER
  2. ALL OTHER THERAPEUTIC PRODUCTS (ALL OTHER THERAPEUTIC PRODUCTS) [Suspect]
     Indication: ILL-DEFINED DISORDER

REACTIONS (1)
  - ANGIONEUROTIC OEDEMA [None]
